FAERS Safety Report 18620528 (Version 1)
Quarter: 2020Q4

REPORT INFORMATION
  Report Type: Spontaneous
  Country: US (occurrence: US)
  Receive Date: 20201216
  Receipt Date: 20201216
  Transmission Date: 20210114
  Serious: Yes (Hospitalization)
  Sender: FDA-Public Use
  Company Number: US-009507513-2012USA005833

PATIENT
  Age: 64 Year
  Sex: Female
  Weight: 55.78 kg

DRUGS (37)
  1. ACTONEL [Suspect]
     Active Substance: RISEDRONATE SODIUM
     Indication: OSTEOPOROSIS
     Dosage: 5 MG DAILY
     Route: 048
     Dates: start: 20030303, end: 200510
  2. ALLEGRA [Concomitant]
     Active Substance: FEXOFENADINE HYDROCHLORIDE
     Indication: HYPERSENSITIVITY
     Dosage: UNK
  3. CALCIUM (UNSPECIFIED) [Concomitant]
     Active Substance: CALCIUM
     Dosage: 1500 MG, UNK
  4. VITAMIN E [Concomitant]
     Active Substance: .ALPHA.-TOCOPHEROL
     Dosage: UNK
  5. GLUCOSAMINE [Concomitant]
     Active Substance: GLUCOSAMINE
     Dosage: UNK
     Dates: start: 200305
  6. HERBS (UNSPECIFIED) [Concomitant]
     Active Substance: HERBALS
     Indication: MOOD ALTERED
     Dosage: UNK
  7. ADVAIR HFA [Concomitant]
     Active Substance: FLUTICASONE PROPIONATE\SALMETEROL XINAFOATE
     Dosage: UNK
  8. ASTELIN (DYPHYLLINE) [Concomitant]
     Active Substance: DYPHYLLINE
     Dosage: UNK
  9. ALLERGENIC EXTRACT [Concomitant]
     Active Substance: ALLERGENIC EXTRACTS
     Dosage: UNK
  10. FOSAMAX [Suspect]
     Active Substance: ALENDRONATE SODIUM
     Indication: OSTEOPENIA
     Dosage: 70 MG ONCE WEEKLY
     Route: 048
     Dates: start: 200510, end: 20070308
  11. ACTONEL [Suspect]
     Active Substance: RISEDRONATE SODIUM
     Indication: OSTEOPENIA
     Dosage: UNK
  12. BLACK COHOSH [Concomitant]
     Active Substance: BLACK COHOSH
     Dosage: UNK
  13. GINKGO [Concomitant]
     Active Substance: GINKGO
     Dosage: UNK
  14. CODEINE (+) GUAIFENESIN [Concomitant]
     Dosage: UNK
  15. ASCORBIC ACID. [Concomitant]
     Active Substance: ASCORBIC ACID
     Dosage: UNK
  16. ECHINACEA PURPUREA [Concomitant]
     Active Substance: ECHINACEA PURPUREA WHOLE
     Dosage: UNK
  17. FLONASE [Concomitant]
     Active Substance: FLUTICASONE PROPIONATE
     Dosage: UNK
  18. TRIAMCINOLONE [Concomitant]
     Active Substance: TRIAMCINOLONE
     Dosage: UNK
  19. VIOXX [Concomitant]
     Active Substance: ROFECOXIB
     Dosage: UNK
  20. FAMOTIDINE. [Concomitant]
     Active Substance: FAMOTIDINE
     Dosage: UNK
  21. FOSAMAX [Suspect]
     Active Substance: ALENDRONATE SODIUM
     Indication: OSTEOPOROSIS
     Dosage: 70 MG ONCE WEEKLY
     Route: 048
     Dates: start: 200207, end: 20021106
  22. BETA CAROTENE. [Concomitant]
     Active Substance: BETA CAROTENE
     Dosage: UNK
  23. ADVIL [Concomitant]
     Active Substance: IBUPROFEN
     Dosage: UNK
  24. HERBS (UNSPECIFIED) [Concomitant]
     Active Substance: HERBALS
     Indication: MEMORY IMPAIRMENT
     Dosage: UNK
  25. FLOVENT [Concomitant]
     Active Substance: FLUTICASONE PROPIONATE
     Dosage: UNK
  26. SPIRIVA [Concomitant]
     Active Substance: TIOTROPIUM BROMIDE MONOHYDRATE
     Dosage: UNK
  27. FOSAMAX PLUS D [Suspect]
     Active Substance: ALENDRONATE SODIUM\CHOLECALCIFEROL
     Indication: OSTEOPOROSIS
     Dosage: 70 MG ONCE WEEKLY
     Route: 048
     Dates: start: 20070308, end: 200903
  28. LACTAID [Concomitant]
     Active Substance: LACTASE
     Dosage: UNK
  29. LOVASTATIN. [Concomitant]
     Active Substance: LOVASTATIN
     Dosage: UNK
  30. FOSAMAX [Suspect]
     Active Substance: ALENDRONATE SODIUM
     Dosage: 70 MG UNKNOWN
     Route: 048
     Dates: end: 200903
  31. ALBUTEROL. [Concomitant]
     Active Substance: ALBUTEROL
     Dosage: UNK
  32. MIACALCIN [Concomitant]
     Active Substance: CALCITONIN SALMON
     Indication: OSTEOPOROSIS
     Dosage: UNK
     Dates: start: 20021106, end: 20030131
  33. NABUMETONE. [Concomitant]
     Active Substance: NABUMETONE
     Dosage: UNK
  34. PREMARIN VAGINAL [Concomitant]
     Active Substance: ESTROGENS, CONJUGATED
     Dosage: UNK
  35. OMEPRAZOLE. [Concomitant]
     Active Substance: OMEPRAZOLE
     Dosage: UNK
  36. NASAREL [Concomitant]
     Active Substance: FLUNISOLIDE
     Dosage: UNK
  37. CALCIUM (UNSPECIFIED) (+) VITAMIN D (UNSPECIFIED) [Concomitant]
     Active Substance: CALCIUM CARBONATE\VITAMIN D
     Dosage: UNK

REACTIONS (18)
  - Stress fracture [Recovered/Resolved]
  - Bone pain [Unknown]
  - Pain in extremity [Unknown]
  - Low turnover osteopathy [Unknown]
  - Pain in extremity [Unknown]
  - Anaemia postoperative [Recovered/Resolved]
  - Peripheral swelling [Recovered/Resolved]
  - Arthralgia [Unknown]
  - Fracture delayed union [Recovered/Resolved]
  - Atypical femur fracture [Recovered/Resolved]
  - Dysstasia [Recovered/Resolved]
  - Bone disorder [Unknown]
  - Limb asymmetry [Not Recovered/Not Resolved]
  - Fall [Recovered/Resolved]
  - Femur fracture [Recovered/Resolved]
  - Femur fracture [Recovered/Resolved]
  - Fracture displacement [Recovered/Resolved]
  - Fall [Recovered/Resolved]

NARRATIVE: CASE EVENT DATE: 200705
